FAERS Safety Report 5084695-8 (Version None)
Quarter: 2006Q3

REPORT INFORMATION
  Report Type: 
  Country: None (occurrence: None)
  Receive Date: 20060818
  Receipt Date: 20060818
  Transmission Date: 20061208
  Serious: Yes (Other)
  Sender: FDA-Public Use
  Company Number: None

PATIENT
  Age: 52 Year
  Sex: Male
  Weight: 77.1115 kg

DRUGS (1)
  1. PLAVIX [Suspect]
     Indication: STENT PLACEMENT
     Dosage: 75 MG DAILY PO
     Route: 048

REACTIONS (8)
  - ANXIETY [None]
  - ARTHRALGIA [None]
  - DYSGEUSIA [None]
  - FATIGUE [None]
  - INSOMNIA [None]
  - PARAESTHESIA [None]
  - PRURITUS [None]
  - ULCER HAEMORRHAGE [None]
